FAERS Safety Report 12398323 (Version 2)
Quarter: 2016Q3

REPORT INFORMATION
  Report Type: Spontaneous
  Country: GR (occurrence: GR)
  Receive Date: 20160524
  Receipt Date: 20160721
  Transmission Date: 20161109
  Serious: Yes (Hospitalization, Other)
  Sender: FDA-Public Use
  Company Number: GR-TEVA-662109ISR

PATIENT
  Age: 58 Year
  Sex: Female

DRUGS (4)
  1. TRASTUZUMAB [Suspect]
     Active Substance: TRASTUZUMAB
  2. DOCETAXEL. [Suspect]
     Active Substance: DOCETAXEL
  3. FLUOROURACIL (5FU) [Suspect]
     Active Substance: FLUOROURACIL
  4. PLATOSIN [Suspect]
     Active Substance: CISPLATIN

REACTIONS (1)
  - Posterior reversible encephalopathy syndrome [Unknown]
